FAERS Safety Report 9552240 (Version 1)
Quarter: 2013Q3

REPORT INFORMATION
  Report Type: Other
  Country: GB (occurrence: GB)
  Receive Date: 20130925
  Receipt Date: 20130925
  Transmission Date: 20140515
  Serious: Yes (Death)
  Sender: FDA-Public Use
  Company Number: GB-PERRIGO-13GB009553

PATIENT
  Age: 23 Year
  Sex: Male

DRUGS (2)
  1. IBUPROFEN 16028/0027 200 MG [Suspect]
     Indication: PRODUCT USED FOR UNKNOWN INDICATION
     Dosage: 2 TO 4 TABLETS, UNK
     Route: 048
     Dates: start: 20130414, end: 20130414
  2. HYPEROSMOLAR SPORTS SUPPLEMENT [Suspect]
     Indication: PRODUCT USED FOR UNKNOWN INDICATION
     Dosage: UNK
     Route: 048
     Dates: start: 20130414, end: 20130414

REACTIONS (8)
  - Myocardial infarction [Fatal]
  - Intestinal ischaemia [Fatal]
  - Exercise tolerance decreased [Fatal]
  - Dehydration [Fatal]
  - Gastrointestinal haemorrhage [Fatal]
  - Hyperthermia [Fatal]
  - Idiosyncratic drug reaction [Fatal]
  - Blood potassium increased [Fatal]
